APPROVED DRUG PRODUCT: MEGESTROL ACETATE
Active Ingredient: MEGESTROL ACETATE
Strength: 40MG
Dosage Form/Route: TABLET;ORAL
Application: A074745 | Product #001
Applicant: TEVA PHARMACEUTICALS USA INC
Approved: Feb 27, 1998 | RLD: No | RS: No | Type: DISCN